FAERS Safety Report 22619890 (Version 1)
Quarter: 2023Q2

REPORT INFORMATION
  Report Type: Spontaneous
  Country: CH (occurrence: CH)
  Receive Date: 20230620
  Receipt Date: 20230620
  Transmission Date: 20230722
  Serious: Yes (Other)
  Sender: FDA-Public Use
  Company Number: CH-BAYER-2023A083471

PATIENT
  Age: 62 Year
  Sex: Male

DRUGS (5)
  1. EYLEA [Suspect]
     Active Substance: AFLIBERCEPT
     Indication: Diabetic retinopathy
     Dosage: UNK; SOLUTION FOR INJECTION
     Route: 031
  2. PREDNISONE [Concomitant]
     Active Substance: PREDNISONE
     Indication: Eye inflammation
     Dosage: 60 MG, QD
  3. AZATHIOPRINE [Concomitant]
     Active Substance: AZATHIOPRINE
     Indication: Hepatic enzyme increased
  4. ADALIMUMAB [Concomitant]
     Active Substance: ADALIMUMAB
     Indication: Product used for unknown indication
     Dosage: 40 MG, ORTNIGHTLY
     Route: 058
  5. DEXAMETHASONE [Concomitant]
     Active Substance: DEXAMETHASONE
     Indication: Product used for unknown indication
     Dosage: UNK

REACTIONS (6)
  - Retinal scar [Unknown]
  - Macular degeneration [Unknown]
  - Visual impairment [Unknown]
  - Retinopathy proliferative [Unknown]
  - Retinal detachment [Unknown]
  - Off label use [Unknown]
